FAERS Safety Report 5066519-8 (Version None)
Quarter: 2006Q3

REPORT INFORMATION
  Report Type: 
  Country: None (occurrence: None)
  Receive Date: 20060731
  Receipt Date: 20060731
  Transmission Date: 20061208
  Serious: Yes (Hospitalization)
  Sender: FDA-Public Use
  Company Number: None

PATIENT
  Age: 48 Year
  Sex: Male
  Weight: 68.4932 kg

DRUGS (10)
  1. VANCOMYCIN [Suspect]
     Indication: INFECTION PROPHYLAXIS
     Dosage: 1 GM ONCE IV
     Route: 042
     Dates: start: 20060414, end: 20060414
  2. DOCUSATE NA [Concomitant]
  3. FERROUS SO4 [Concomitant]
  4. FINASTERIDE [Concomitant]
  5. FUROSEMIDE [Concomitant]
  6. SYNTHROID [Concomitant]
  7. MICONAZOLE NITRATE [Concomitant]
  8. MOXIFLOXACIN HCL [Concomitant]
  9. MULTI-VITAMIN [Concomitant]
  10. NYSTATIN [Concomitant]

REACTIONS (4)
  - BLOOD PRESSURE DECREASED [None]
  - DRUG HYPERSENSITIVITY [None]
  - INFUSION RELATED REACTION [None]
  - PRURITUS [None]
